FAERS Safety Report 7005793-5 (Version None)
Quarter: 2010Q3

REPORT INFORMATION
  Report Type: 
  Country: None (occurrence: None)
  Receive Date: 20100921
  Receipt Date: 20100916
  Transmission Date: 20110219
  Serious: Yes (Death, Hospitalization)
  Sender: FDA-Public Use
  Company Number: DE-BRISTOL-MYERS SQUIBB COMPANY-15154834

PATIENT
  Age: 34 Year
  Sex: Female

DRUGS (4)
  1. ABILIFY [Suspect]
  2. SEROQUEL [Suspect]
     Indication: PSYCHOTIC DISORDER
     Dosage: REDUCED TO 200MG
     Dates: start: 20090101
  3. AMISULPRIDE [Suspect]
     Indication: PSYCHOTIC DISORDER
     Dates: start: 20090101, end: 20100101
  4. LAMOTRIGINE [Suspect]

REACTIONS (5)
  - ACIDOSIS [None]
  - ATRIOVENTRICULAR BLOCK [None]
  - BLOOD LACTIC ACID INCREASED [None]
  - BRADYARRHYTHMIA [None]
  - CARDIOVASCULAR INSUFFICIENCY [None]
